FAERS Safety Report 6042036-3 (Version None)
Quarter: 2009Q1

REPORT INFORMATION
  Report Type: 
  Country: None (occurrence: None)
  Receive Date: 20090116
  Receipt Date: 20090112
  Transmission Date: 20090719
  Serious: Yes (Hospitalization)
  Sender: FDA-Public Use
  Company Number: DE-TEVA-183712ISR

PATIENT
  Sex: Male

DRUGS (9)
  1. FLUOROURACIL [Suspect]
     Indication: COLORECTAL CANCER METASTATIC
     Route: 040
     Dates: start: 20080709
  2. FLUOROURACIL [Suspect]
     Route: 041
     Dates: start: 20080709
  3. LEUCOVORIN CALCIUM [Suspect]
     Indication: COLORECTAL CANCER METASTATIC
     Route: 042
     Dates: start: 20080709
  4. IRINOTECAN HYDROCHLORIDE [Suspect]
     Route: 042
     Dates: start: 20080709
  5. SUNITINIB MALATE (BLINDED THERAPY) [Suspect]
     Indication: COLORECTAL CANCER METASTATIC
  6. GRANISETRON  HCL [Concomitant]
  7. DEXAMETHASONE TAB [Concomitant]
  8. ATROPINE SULFATE [Concomitant]
     Dates: start: 20080709
  9. BUPRENORPHINE HYDROCHLORIDE [Concomitant]
     Dates: start: 20080401

REACTIONS (1)
  - ILEUS [None]
